FAERS Safety Report 4290179-7 (Version None)
Quarter: 2004Q1

REPORT INFORMATION
  Report Type: 
  Country: None (occurrence: None)
  Receive Date: 20040209
  Receipt Date: 20040203
  Transmission Date: 20041129
  Serious: Yes (Death, Hospitalization)
  Sender: FDA-Public Use
  Company Number: US-JNJFOC-20031203295

PATIENT
  Age: 79 Year
  Sex: Male

DRUGS (11)
  1. DOXIL [Suspect]
     Indication: MULTIPLE MYELOMA
     Dosage: 88MG (40 MG/M2), 2 CYCLES
     Dates: start: 20031028, end: 20031125
  2. THALIDOMIDE (THALIDOMIDE) [Suspect]
     Indication: MULTIPLE MYELOMA
     Dosage: SEE IMAGE
     Route: 048
     Dates: start: 20031028, end: 20031111
  3. THALIDOMIDE (THALIDOMIDE) [Suspect]
     Indication: MULTIPLE MYELOMA
     Dosage: SEE IMAGE
     Route: 048
     Dates: start: 20031112, end: 20031202
  4. PLAVIX [Concomitant]
  5. TIAZAC [Concomitant]
  6. IRBESARTAN (IRBESARTAN) [Concomitant]
  7. LASIX [Concomitant]
  8. RANITIDINE [Concomitant]
  9. SIMVASTATIN [Concomitant]
  10. CLONIDINE [Concomitant]
  11. POTASSIUM (POTASSIUM) [Concomitant]

REACTIONS (25)
  - ACTIVATED PARTIAL THROMBOPLASTIN TIME PROLONGED [None]
  - ACUTE RESPIRATORY DISTRESS SYNDROME [None]
  - ASPARTATE AMINOTRANSFERASE INCREASED [None]
  - BLOOD ALBUMIN DECREASED [None]
  - BLOOD CALCIUM DECREASED [None]
  - BLOOD CREATINE INCREASED [None]
  - BLOOD FIBRINOGEN INCREASED [None]
  - BLOOD LACTATE DEHYDROGENASE INCREASED [None]
  - BLOOD PHOSPHORUS INCREASED [None]
  - BLOOD UREA INCREASED [None]
  - CANDIDA PNEUMONIA [None]
  - CARDIOMEGALY [None]
  - HAEMOGLOBIN DECREASED [None]
  - INTERSTITIAL LUNG DISEASE [None]
  - MYOGLOBIN BLOOD INCREASED [None]
  - PLATELET COUNT DECREASED [None]
  - PNEUMONIA LEGIONELLA [None]
  - PNEUMONIA STAPHYLOCOCCAL [None]
  - PNEUMOTHORAX [None]
  - POST PROCEDURAL COMPLICATION [None]
  - PULMONARY CONGESTION [None]
  - RESPIRATORY FAILURE [None]
  - SEPSIS [None]
  - SUBCUTANEOUS EMPHYSEMA [None]
  - WHITE BLOOD CELL COUNT DECREASED [None]
